FAERS Safety Report 4384166-8 (Version None)
Quarter: 2004Q2

REPORT INFORMATION
  Report Type: 
  Country: None (occurrence: None)
  Receive Date: 20040623
  Receipt Date: 20040623
  Transmission Date: 20050107
  Serious: Yes (Life-Threatening, Hospitalization)
  Sender: FDA-Public Use
  Company Number: None

PATIENT
  Age: 58 Year
  Sex: Female
  Weight: 85 kg

DRUGS (2)
  1. ROFECOXIB [Suspect]
     Indication: OSTEOARTHRITIS
     Dosage: 25 MG DAILY ORAL
     Route: 048
     Dates: start: 20040202, end: 20040214
  2. WARFARIN SODIUM [Suspect]
     Indication: ANTICOAGULANT THERAPY
     Dosage: 2.5 MG DAILY ORAL
     Route: 048
     Dates: start: 20040202, end: 20040214

REACTIONS (15)
  - BLOOD PRESSURE SYSTOLIC DECREASED [None]
  - CATHETER SITE HAEMORRHAGE [None]
  - CONTUSION [None]
  - DIZZINESS [None]
  - DUODENAL ULCER [None]
  - FAECES DISCOLOURED [None]
  - GASTRIC ULCER [None]
  - GASTROINTESTINAL HAEMORRHAGE [None]
  - HAEMATEMESIS [None]
  - HAEMOGLOBIN DECREASED [None]
  - JUGULAR VEIN THROMBOSIS [None]
  - NAUSEA [None]
  - SUBCLAVIAN VEIN THROMBOSIS [None]
  - SWELLING [None]
  - SYNCOPE [None]
